FAERS Safety Report 6470647-X (Version None)
Quarter: 2009Q4

REPORT INFORMATION
  Report Type: 
  Country: None (occurrence: None)
  Receive Date: 20091119
  Receipt Date: 20090805
  Transmission Date: 20100525
  Serious: Yes (Hospitalization)
  Sender: FDA-Public Use
  Company Number: WAES 0908USA01030

PATIENT
  Age: 45 Year
  Sex: Male
  Weight: 136.9863 kg

DRUGS (2)
  1. JANUVIA [Suspect]
     Indication: TYPE 2 DIABETES MELLITUS
     Dosage: 100 MG/DAILY/PO
     Route: 048
     Dates: start: 20090714, end: 20090804
  2. PENICILLIN VK [Concomitant]

REACTIONS (2)
  - RASH [None]
  - SCAR [None]
